FAERS Safety Report 4388449-7 (Version None)
Quarter: 2004Q3

REPORT INFORMATION
  Report Type: 
  Country: None (occurrence: None)
  Receive Date: 20040701
  Receipt Date: 20040415
  Transmission Date: 20050211
  Serious: Yes (Life-Threatening, Hospitalization, Other)
  Sender: FDA-Public Use
  Company Number: FR-BRISTOL-MYERS SQUIBB COMPANY-12562187

PATIENT
  Age: 59 Year
  Sex: Male
  Weight: 100 kg

DRUGS (8)
  1. CARDIOLITE [Suspect]
     Indication: SCAN PARATHYROID
     Route: 042
     Dates: start: 20040408, end: 20040408
  2. UN-ALFA [Concomitant]
     Dates: start: 20040330, end: 20040413
  3. EUCALCIC [Concomitant]
     Indication: HYPOCALCAEMIA
     Dates: start: 20040330
  4. ATARAX [Concomitant]
  5. APROVEL [Concomitant]
     Indication: HYPERTENSION
  6. EUPRESSYL [Concomitant]
     Indication: HYPERTENSION
  7. FUROSEMIDE [Concomitant]
     Indication: HYPERTENSION
  8. PHENOBARBITAL TAB [Concomitant]

REACTIONS (4)
  - DYSPNOEA [None]
  - PARAESTHESIA [None]
  - RENAL FAILURE [None]
  - WEIGHT INCREASED [None]
